FAERS Safety Report 19709753 (Version 2)
Quarter: 2021Q3

REPORT INFORMATION
  Report Type: Spontaneous
  Country: GB (occurrence: GB)
  Receive Date: 20210816
  Receipt Date: 20210830
  Transmission Date: 20211014
  Serious: Yes (Hospitalization, Other)
  Sender: FDA-Public Use
  Company Number: GB-SA-2021SA266044

PATIENT
  Age: 70 Year
  Sex: Female

DRUGS (4)
  1. APROVEL [Suspect]
     Active Substance: IRBESARTAN
  2. APROVEL [Suspect]
     Active Substance: IRBESARTAN
     Dosage: UNK
  3. APROVEL [Suspect]
     Active Substance: IRBESARTAN
     Indication: HYPERTENSION
     Dosage: UNK
  4. METHOTREXATE. [Concomitant]
     Active Substance: METHOTREXATE
     Dosage: UNK

REACTIONS (14)
  - Cardiac disorder [Not Recovered/Not Resolved]
  - Product quality issue [Unknown]
  - Pneumonia [Not Recovered/Not Resolved]
  - Chapped lips [Not Recovered/Not Resolved]
  - Burning sensation [Not Recovered/Not Resolved]
  - Malaise [Not Recovered/Not Resolved]
  - Feeling abnormal [Not Recovered/Not Resolved]
  - Illness [Not Recovered/Not Resolved]
  - Bone marrow disorder [Not Recovered/Not Resolved]
  - Gastrointestinal disorder [Not Recovered/Not Resolved]
  - Product availability issue [Unknown]
  - Pyrexia [Not Recovered/Not Resolved]
  - Lymphocyte count decreased [Not Recovered/Not Resolved]
  - Night sweats [Not Recovered/Not Resolved]
